FAERS Safety Report 9458331 (Version 1)
Quarter: 2013Q3

REPORT INFORMATION
  Report Type: Spontaneous
  Country: US (occurrence: US)
  Receive Date: 20130814
  Receipt Date: 20130814
  Transmission Date: 20140515
  Serious: Yes (Other)
  Sender: FDA-Public Use
  Company Number: US-PFIZER INC-2013234982

PATIENT
  Age: 86 Year
  Sex: Female
  Weight: 47.62 kg

DRUGS (2)
  1. ADVIL [Suspect]
     Indication: PAIN
     Dosage: UNK, 2X/DAY
     Route: 048
     Dates: start: 2013, end: 2013
  2. ADVIL [Suspect]
     Dosage: UNK, AS NEEDED
     Route: 048

REACTIONS (5)
  - Overdose [Unknown]
  - Haemorrhage [Unknown]
  - Scar [Unknown]
  - Localised infection [Unknown]
  - Pruritus [Unknown]
